FAERS Safety Report 21588774 (Version 1)
Quarter: 2022Q4

REPORT INFORMATION
  Report Type: Report from Study
  Country: US (occurrence: US)
  Receive Date: 20221114
  Receipt Date: 20221114
  Transmission Date: 20230113
  Serious: Yes (Other)
  Sender: FDA-Public Use
  Company Number: US-SUN PHARMACEUTICAL INDUSTRIES LTD-2022R1-363591

PATIENT
  Age: 54 Year
  Sex: Male

DRUGS (12)
  1. LEUCOVORIN CALCIUM [Suspect]
     Active Substance: LEUCOVORIN CALCIUM
     Indication: Adenocarcinoma pancreas
     Dosage: UNK
     Route: 065
  2. LEUCOVORIN CALCIUM [Suspect]
     Active Substance: LEUCOVORIN CALCIUM
     Indication: Lung neoplasm malignant
  3. LEUCOVORIN CALCIUM [Suspect]
     Active Substance: LEUCOVORIN CALCIUM
     Indication: Hepatic cancer
  4. IRINOTECAN [Suspect]
     Active Substance: IRINOTECAN
     Indication: Adenocarcinoma pancreas
  5. IRINOTECAN [Suspect]
     Active Substance: IRINOTECAN
     Indication: Lung neoplasm malignant
  6. IRINOTECAN [Suspect]
     Active Substance: IRINOTECAN
     Indication: Hepatic cancer
  7. OXALIPLATIN [Suspect]
     Active Substance: OXALIPLATIN
     Indication: Adenocarcinoma pancreas
     Dosage: UNK
     Route: 065
  8. OXALIPLATIN [Suspect]
     Active Substance: OXALIPLATIN
     Indication: Lung neoplasm malignant
  9. OXALIPLATIN [Suspect]
     Active Substance: OXALIPLATIN
     Indication: Hepatic cancer
  10. FLUOROURACIL SODIUM [Suspect]
     Active Substance: FLUOROURACIL SODIUM
     Indication: Adenocarcinoma pancreas
     Dosage: UNK
     Route: 065
  11. FLUOROURACIL SODIUM [Suspect]
     Active Substance: FLUOROURACIL SODIUM
     Indication: Lung neoplasm malignant
  12. FLUOROURACIL SODIUM [Suspect]
     Active Substance: FLUOROURACIL SODIUM
     Indication: Hepatic cancer

REACTIONS (1)
  - Neoplasm progression [Unknown]
